FAERS Safety Report 23985942 (Version 1)
Quarter: 2024Q2

REPORT INFORMATION
  Report Type: Report from Study
  Country: DE (occurrence: DE)
  Receive Date: 20240618
  Receipt Date: 20240618
  Transmission Date: 20240716
  Serious: Yes (Hospitalization)
  Sender: FDA-Public Use
  Company Number: DE-PFIZER INC-PV202400077804

PATIENT
  Age: 2 Year
  Sex: Female
  Weight: 9.08 kg

DRUGS (5)
  1. GENOTROPIN [Suspect]
     Active Substance: SOMATROPIN
     Indication: Prader-Willi syndrome
     Dosage: 0.3 MG
     Route: 058
     Dates: start: 20231216
  2. COENZYM Q10 [Concomitant]
     Dosage: 90 MG, DAILY
  3. CARNITINE [Concomitant]
     Active Substance: CARNITINE
     Dosage: 250 MG, DAILY
  4. VITAMIN D NOS [Concomitant]
     Active Substance: CHOLECALCIFEROL\ERGOCALCIFEROL
     Dosage: 500 IU, DAILY
  5. VITAMIN B12 [Concomitant]
     Active Substance: CYANOCOBALAMIN
     Dosage: 1 DROP, DAILY

REACTIONS (4)
  - Bronchitis [Recovering/Resolving]
  - Obstructive sleep apnoea syndrome [Recovering/Resolving]
  - Condition aggravated [Recovering/Resolving]
  - Pneumonia [Recovering/Resolving]

NARRATIVE: CASE EVENT DATE: 20240101
